FAERS Safety Report 19900136 (Version 1)
Quarter: 2021Q3

REPORT INFORMATION
  Report Type: Spontaneous
  Country: CN (occurrence: CN)
  Receive Date: 20210929
  Receipt Date: 20210929
  Transmission Date: 20211014
  Serious: Yes (Life-Threatening)
  Sender: FDA-Public Use
  Company Number: CN-FRESENIUS KABI-FK202110416

PATIENT
  Age: 92 Year
  Sex: Female

DRUGS (1)
  1. INTRALIPID [Suspect]
     Active Substance: EGG PHOSPHOLIPIDS\GLYCERIN\SOYBEAN OIL
     Indication: NUTRITIONAL SUPPLEMENTATION
     Dosage: THE DOSAGE FORM WAS REPORTED AS INJECTION IN THE SOURCE.
     Route: 041
     Dates: start: 20210917, end: 20210917

REACTIONS (8)
  - Agitation [Recovering/Resolving]
  - Tachypnoea [Recovering/Resolving]
  - Skin disorder [Recovering/Resolving]
  - Blood pressure increased [Recovering/Resolving]
  - Body temperature increased [Recovering/Resolving]
  - Chills [Recovering/Resolving]
  - Communication disorder [Recovering/Resolving]
  - Oxygen saturation decreased [Recovering/Resolving]

NARRATIVE: CASE EVENT DATE: 20210917
